FAERS Safety Report 17260866 (Version 2)
Quarter: 2020Q1

REPORT INFORMATION
  Report Type: Spontaneous
  Country: US (occurrence: US)
  Receive Date: 20200113
  Receipt Date: 20200305
  Transmission Date: 20200409
  Serious: No
  Sender: FDA-Public Use
  Company Number: US-009507513-1912USA011300

PATIENT
  Age: 27 Year
  Sex: Female
  Weight: 71.2 kg

DRUGS (2)
  1. NEXPLANON [Suspect]
     Active Substance: ETONOGESTREL
     Dosage: LEFT ARM, A NEW IMPLANT
     Route: 059
     Dates: start: 20191224
  2. NEXPLANON [Suspect]
     Active Substance: ETONOGESTREL
     Dosage: LEFT UPPER ARM, AN IMPLANT
     Route: 059
     Dates: start: 20191224, end: 20191224

REACTIONS (3)
  - Device difficult to use [Recovered/Resolved]
  - Complication of device insertion [Recovered/Resolved]
  - Product quality issue [Unknown]

NARRATIVE: CASE EVENT DATE: 20191224
